FAERS Safety Report 25663361 (Version 1)
Quarter: 2025Q3

REPORT INFORMATION
  Report Type: Spontaneous
  Country: US (occurrence: US)
  Receive Date: 20250811
  Receipt Date: 20250811
  Transmission Date: 20251020
  Serious: Yes (Hospitalization)
  Sender: CHIESI
  Company Number: US-CHIESI-2025CHF05483

PATIENT

DRUGS (2)
  1. MYCAPSSA [Suspect]
     Active Substance: OCTREOTIDE
     Indication: Tonsil cancer
     Dosage: 40 MILLIGRAM, BID
     Route: 065
  2. MYCAPSSA [Suspect]
     Active Substance: OCTREOTIDE
     Indication: Off label use

REACTIONS (2)
  - Ill-defined disorder [Unknown]
  - Off label use [Unknown]
